FAERS Safety Report 7952771-5 (Version None)
Quarter: 2011Q4

REPORT INFORMATION
  Report Type: 
  Country: None (occurrence: None)
  Receive Date: 20111201
  Receipt Date: 20111119
  Transmission Date: 20120403
  Serious: Yes (Hospitalization, Other)
  Sender: FDA-Public Use
  Company Number: US-BAYER-2011-025518

PATIENT
  Age: 21 Year
  Sex: Female
  Weight: 61 kg

DRUGS (14)
  1. YAZ [Suspect]
     Indication: CONTRACEPTION
     Dosage: UNK
     Dates: start: 20071001, end: 20090201
  2. YAZ [Suspect]
  3. LORATADINE AND PSEUDOEPHEDRINE SULFATE [Concomitant]
     Indication: HYPERSENSITIVITY
  4. MULTI-VITAMINS [Concomitant]
  5. OXYCODONE HCL [Concomitant]
     Indication: ANALGESIC THERAPY
  6. ASCORBIC ACID [Concomitant]
     Dosage: UNK UNK, PRN
  7. CEPHALEXIN [Concomitant]
     Dosage: 250 MG, UNK
  8. IBUPROFEN [Concomitant]
     Dosage: UNK UNK, PRN
  9. IBUPROFEN (ADVIL) [Concomitant]
     Indication: ANALGESIC THERAPY
  10. YAZ [Suspect]
     Indication: ACNE
  11. YAZ [Suspect]
     Indication: PREMENSTRUAL SYNDROME
  12. ACETAMINOPHEN [Concomitant]
     Indication: ANALGESIC THERAPY
  13. PROZAC [Concomitant]
     Dosage: 20 MG, QD
     Route: 048
     Dates: start: 20081226
  14. FLUOXETINE HYDROCHLORIDE [Concomitant]

REACTIONS (7)
  - CHOLECYSTITIS CHRONIC [None]
  - EMOTIONAL DISTRESS [None]
  - PAIN [None]
  - CHOLECYSTITIS [None]
  - INJURY [None]
  - DYSPEPSIA [None]
  - WEIGHT DECREASED [None]
